FAERS Safety Report 14474473 (Version 1)
Quarter: 2018Q1

REPORT INFORMATION
  Report Type: Spontaneous
  Country: US (occurrence: US)
  Receive Date: 20180131
  Receipt Date: 20180131
  Transmission Date: 20180509
  Serious: No
  Sender: FDA-Public Use
  Company Number: None

PATIENT
  Age: 40 Year
  Sex: Female
  Weight: 69.85 kg

DRUGS (1)
  1. BUPRENORPHINE -NALOXONE TAB 2-0.5MG [Suspect]
     Active Substance: BUPRENORPHINE\NALOXONE
     Indication: DRUG DEPENDENCE
     Dosage: 30/30 DAYS QD PO
     Route: 048
     Dates: start: 20180104, end: 20180124

REACTIONS (2)
  - Drug dependence [None]
  - Condition aggravated [None]

NARRATIVE: CASE EVENT DATE: 20180125
